FAERS Safety Report 9653174 (Version 1)
Quarter: 2013Q4

REPORT INFORMATION
  Report Type: Spontaneous
  Country: EC (occurrence: EC)
  Receive Date: 20131029
  Receipt Date: 20131029
  Transmission Date: 20140711
  Serious: Yes (Death, Hospitalization, Other)
  Sender: FDA-Public Use
  Company Number: EC-PFIZER INC-2013308695

PATIENT
  Age: 67 Year
  Sex: Male

DRUGS (1)
  1. LIPITOR [Suspect]
     Indication: HYPERCHOLESTEROLAEMIA
     Dosage: 20 MG, UNK
     Route: 048

REACTIONS (4)
  - Myocardial infarction [Fatal]
  - Cerebrovascular accident [Not Recovered/Not Resolved]
  - Aphasia [Not Recovered/Not Resolved]
  - Paralysis [Not Recovered/Not Resolved]
